FAERS Safety Report 11286055 (Version 1)
Quarter: 2015Q3

REPORT INFORMATION
  Report Type: Spontaneous
  Country: US (occurrence: None)
  Receive Date: 20150717
  Receipt Date: 20150717
  Transmission Date: 20151125
  Serious: No
  Sender: FDA-Public Use
  Company Number: None

PATIENT
  Age: 59 Year
  Sex: Male
  Weight: 88.2 kg

DRUGS (2)
  1. VANCOMYCIN [Suspect]
     Active Substance: VANCOMYCIN
     Indication: NEOPLASM MALIGNANT
     Route: 042
     Dates: start: 20140113, end: 20140113
  2. VANCOMYCIN [Suspect]
     Active Substance: VANCOMYCIN
     Indication: CENTRAL VENOUS CATHETERISATION
     Route: 042
     Dates: start: 20140113, end: 20140113

REACTIONS (4)
  - Periorbital oedema [None]
  - Drug hypersensitivity [None]
  - Dry skin [None]
  - Pruritus [None]

NARRATIVE: CASE EVENT DATE: 20140117
